FAERS Safety Report 5316317-2 (Version None)
Quarter: 2007Q2

REPORT INFORMATION
  Report Type: 
  Country: None (occurrence: None)
  Receive Date: 20070430
  Receipt Date: 20070423
  Transmission Date: 20071010
  Serious: Yes (Death)
  Sender: FDA-Public Use
  Company Number: 163-20785-07031611

PATIENT
  Age: 80 Year
  Sex: Female

DRUGS (1)
  1. THALOMID [Suspect]
     Indication: MULTIPLE MYELOMA
     Dosage: 50 MG, 1 IN 1 D, ORAL
     Route: 048
     Dates: start: 20070205, end: 20070301

REACTIONS (2)
  - RESPIRATORY FAILURE [None]
  - SEPSIS [None]
